FAERS Safety Report 17899513 (Version 1)
Quarter: 2020Q2

REPORT INFORMATION
  Report Type: Other
  Country: JP (occurrence: JP)
  Receive Date: 20200616
  Receipt Date: 20200616
  Transmission Date: 20200714
  Serious: Yes (Hospitalization)
  Sender: FDA-Public Use
  Company Number: JP-NUVO PHARMACEUTICALS INC-2085913

PATIENT
  Age: 11 Year
  Sex: Male
  Weight: 36.5 kg

DRUGS (1)
  1. OXYCODONE HYDROCHLORIDE. [Suspect]
     Active Substance: OXYCODONE HYDROCHLORIDE
     Indication: PAIN
     Route: 042

REACTIONS (7)
  - Nausea [Unknown]
  - Anxiety [Unknown]
  - Overdose [Unknown]
  - Constipation [Unknown]
  - Drug ineffective [Unknown]
  - Fatigue [Unknown]
  - Drug dependence [Unknown]
